FAERS Safety Report 18923775 (Version 1)
Quarter: 2021Q1

REPORT INFORMATION
  Report Type: Report from Study
  Country: DZ (occurrence: DZ)
  Receive Date: 20210222
  Receipt Date: 20210222
  Transmission Date: 20210420
  Serious: Yes (Death)
  Sender: FDA-Public Use
  Company Number: DZ-JNJFOC-20210233489

PATIENT
  Age: 35 Year
  Sex: Female

DRUGS (1)
  1. VENTAVIS [Suspect]
     Active Substance: ILOPROST
     Indication: PULMONARY HYPERTENSION
     Dosage: 2 DOSAGE FORM(S) AT AN UNSPECIFIED FREQUENCY
     Route: 065

REACTIONS (1)
  - Cardiac arrest [Fatal]
